FAERS Safety Report 6239137-3 (Version None)
Quarter: 2009Q2

REPORT INFORMATION
  Report Type: 
  Country: None (occurrence: None)
  Receive Date: 20090622
  Receipt Date: 20090610
  Transmission Date: 20091009
  Serious: Yes (Hospitalization)
  Sender: FDA-Public Use
  Company Number: US-JNJFOC-20090604188

PATIENT
  Sex: Male
  Weight: 36 kg

DRUGS (4)
  1. REMICADE [Suspect]
     Route: 042
  2. REMICADE [Suspect]
     Indication: CROHN'S DISEASE
     Dosage: 2 INFUSIONS TOTAL
     Route: 042
  3. AZATHIOPRINE [Concomitant]
  4. FLAGYL [Concomitant]

REACTIONS (2)
  - RASH PUSTULAR [None]
  - SECRETION DISCHARGE [None]
